FAERS Safety Report 9295927 (Version 1)
Quarter: 2013Q1

REPORT INFORMATION
  Report Type: Spontaneous
  Country: US (occurrence: None)
  Receive Date: 20121231
  Receipt Date: 20121231
  Transmission Date: 20140127
  Serious: Yes (Hospitalization)
  Sender: FDA-Public Use
  Company Number: RB-44574-2012

PATIENT
  Age: 33 Year
  Sex: Female

DRUGS (3)
  1. SUBOXONE [Suspect]
     Indication: DRUG DEPENDENCE
  2. BUPRENORPHINE [Suspect]
     Indication: DRUG DEPENDENCE
     Dosage: 1-2 MG DAILY SUBLINGUAL
     Dates: start: 201202
  3. SUBOXONE [Suspect]
     Indication: DRUG DEPENDENCE
     Route: 051
     Dates: start: 201110, end: 201202

REACTIONS (5)
  - Drug dependence [None]
  - Drug withdrawal syndrome [None]
  - Dental caries [None]
  - Maternal exposure during pregnancy [None]
  - Wrong technique in drug usage process [None]
